FAERS Safety Report 17769946 (Version 1)
Quarter: 2020Q2

REPORT INFORMATION
  Report Type: Spontaneous
  Country: US (occurrence: US)
  Receive Date: 20200512
  Receipt Date: 20200512
  Transmission Date: 20200714
  Serious: No
  Sender: FDA-Public Use
  Company Number: US-PFIZER INC-2018375374

PATIENT
  Age: 2 Year
  Sex: Male
  Weight: 12.25 kg

DRUGS (3)
  1. GENOTROPIN [Suspect]
     Active Substance: SOMATROPIN
     Indication: NOONAN SYNDROME
     Dosage: 0.6 MG, 1X/DAY
     Route: 058
     Dates: start: 20180903
  2. GENOTROPIN [Suspect]
     Active Substance: SOMATROPIN
     Dosage: 0.6 MG, DAILY (0.6MG DAILY X 6)
     Dates: start: 20180910
  3. GENOTROPIN [Suspect]
     Active Substance: SOMATROPIN
     Dosage: 0.9 MG (6 DAYS A WEEK)
     Dates: start: 20180903

REACTIONS (5)
  - Product use in unapproved indication [Unknown]
  - Wrong technique in device usage process [Unknown]
  - Device issue [Unknown]
  - Off label use [Unknown]
  - Circumstance or information capable of leading to device use error [Unknown]
